FAERS Safety Report 24658650 (Version 1)
Quarter: 2024Q4

REPORT INFORMATION
  Report Type: Other
  Country: LK (occurrence: LK)
  Receive Date: 20241125
  Receipt Date: 20241125
  Transmission Date: 20250114
  Serious: Yes (Death)
  Sender: Velzen Pharma
  Company Number: LK-Velzen pharma pvt ltd-2165855

PATIENT
  Sex: Male

DRUGS (1)
  1. NIFEDIPINE [Suspect]
     Active Substance: NIFEDIPINE
     Indication: Product used for unknown indication

REACTIONS (6)
  - Toxicity to various agents [Fatal]
  - Overdose [Unknown]
  - Sinus tachycardia [Fatal]
  - Dizziness [Fatal]
  - Vomiting [Fatal]
  - Trismus [Fatal]
